FAERS Safety Report 10044168 (Version 2)
Quarter: 2014Q2

REPORT INFORMATION
  Report Type: Spontaneous
  Country: US (occurrence: US)
  Receive Date: 20140328
  Receipt Date: 20140429
  Transmission Date: 20141212
  Serious: Yes (Hospitalization)
  Sender: FDA-Public Use
  Company Number: US-ELI_LILLY_AND_COMPANY-US201403007157

PATIENT
  Age: 75 Year
  Sex: Male
  Weight: 88.44 kg

DRUGS (12)
  1. CYMBALTA [Suspect]
     Indication: PAIN IN EXTREMITY
     Dosage: 30 MG, QD
     Route: 065
     Dates: start: 201402, end: 201403
  2. CYMBALTA [Suspect]
     Indication: SCIATICA
     Dosage: 60 MG, QD
     Route: 065
     Dates: start: 201403, end: 201403
  3. CYMBALTA [Suspect]
     Dosage: 60 MG, TID
     Route: 065
     Dates: start: 20140310, end: 20140311
  4. DULOXETINE HYDROCHLORIDE [Suspect]
     Indication: PAIN IN EXTREMITY
     Dosage: 60 MG, TID
     Dates: start: 20140310, end: 20140311
  5. DULOXETINE HYDROCHLORIDE [Suspect]
     Indication: SCIATICA
  6. CRESTOR [Concomitant]
     Dosage: 40 MG, UNK
  7. TICAGRELOR [Concomitant]
     Dosage: 90 MG, UNK
  8. LOSARTAN [Concomitant]
     Dosage: 50 MG, UNK
  9. OMEPRAZOLE [Concomitant]
     Dosage: 40 MG, UNK
  10. ZETIA [Concomitant]
     Dosage: 10 MG, UNK
  11. VITAMIN B12                        /00091801/ [Concomitant]
  12. IRON [Concomitant]

REACTIONS (8)
  - Chest pain [Recovered/Resolved]
  - Glassy eyes [Recovered/Resolved]
  - Mental impairment [Recovered/Resolved]
  - Head discomfort [Recovered/Resolved]
  - Drug prescribing error [Recovered/Resolved]
  - Dry mouth [Recovered/Resolved]
  - Dizziness [Recovered/Resolved]
  - Somnolence [Recovered/Resolved]
